FAERS Safety Report 5347966-3 (Version None)
Quarter: 2007Q2

REPORT INFORMATION
  Report Type: 
  Country: None (occurrence: None)
  Receive Date: 20070606
  Receipt Date: 20070531
  Transmission Date: 20071010
  Serious: Yes (Disabling)
  Sender: FDA-Public Use
  Company Number: FR-SANOFI-SYNTHELABO-A02200501237

PATIENT
  Age: 66 Year
  Sex: Male
  Weight: 85 kg

DRUGS (3)
  1. SOPROL [Suspect]
     Indication: DRUG USE FOR UNKNOWN INDICATION
     Route: 048
     Dates: start: 20010101, end: 20050215
  2. PLAVIX [Suspect]
     Indication: DRUG USE FOR UNKNOWN INDICATION
     Route: 048
     Dates: start: 20010615
  3. PROPOLIS [Concomitant]
     Indication: NASOPHARYNGITIS
     Route: 055

REACTIONS (4)
  - INTERSTITIAL LUNG DISEASE [None]
  - PULMONARY EOSINOPHILIA [None]
  - PULMONARY FIBROSIS [None]
  - RESPIRATORY FAILURE [None]
